FAERS Safety Report 5065761-X (Version None)
Quarter: 2006Q3

REPORT INFORMATION
  Report Type: 
  Country: None (occurrence: None)
  Receive Date: 20060731
  Receipt Date: 20060720
  Transmission Date: 20061208
  Serious: Yes (Death)
  Sender: FDA-Public Use
  Company Number: FR-ROCHE-456444

PATIENT
  Age: 62 Year
  Sex: Male

DRUGS (14)
  1. RIVOTRIL [Suspect]
     Indication: DRUG USE FOR UNKNOWN INDICATION
     Dosage: MORNING - 30 DROPS. 2PM - 2 DOSES.
     Route: 030
     Dates: start: 20060507, end: 20060507
  2. RIVOTRIL [Suspect]
     Route: 030
     Dates: start: 20060508, end: 20060508
  3. HYPNOVEL (INJ) [Interacting]
     Indication: DRUG USE FOR UNKNOWN INDICATION
     Route: 042
     Dates: start: 20060507
  4. TERCIAN [Interacting]
     Indication: DRUG USE FOR UNKNOWN INDICATION
     Dosage: STRENGTH = 100MG/5ML
     Route: 030
     Dates: start: 20060508
  5. LOXAPAC [Interacting]
     Indication: DRUG USE FOR UNKNOWN INDICATION
     Route: 030
     Dates: start: 20060507
  6. HALDOL [Interacting]
     Indication: DRUG USE FOR UNKNOWN INDICATION
     Route: 030
     Dates: start: 20060507
  7. RISPERDAL [Interacting]
     Indication: DRUG USE FOR UNKNOWN INDICATION
     Route: 048
     Dates: start: 20060507
  8. COZAAR [Concomitant]
  9. ZOCOR [Concomitant]
  10. ASPIRIN [Concomitant]
  11. OMEPRAZOLE [Concomitant]
  12. NOCTAMIDE [Concomitant]
  13. INSULINE [Concomitant]
  14. THERALENE [Concomitant]

REACTIONS (5)
  - AGITATION [None]
  - CARDIO-RESPIRATORY ARREST [None]
  - DRUG INTERACTION [None]
  - HEADACHE [None]
  - SUDDEN DEATH [None]
